FAERS Safety Report 9813489 (Version 1)
Quarter: 2014Q1

REPORT INFORMATION
  Report Type: Spontaneous
  Country: US (occurrence: None)
  Receive Date: 20140109
  Receipt Date: 20140109
  Transmission Date: 20141002
  Serious: Yes (Hospitalization)
  Sender: FDA-Public Use
  Company Number: 2108072

PATIENT
  Age: 65 Year
  Sex: Female
  Weight: 104.55 kg

DRUGS (4)
  1. VANCOMYCIN HYDROCHLORIDE [Suspect]
     Indication: INFECTION
     Dosage: UNKNOWN, UNKNOWN, UNKNOWN, INTRAVENOUS
     Route: 042
  2. GLATIRAMER ACETATE [Suspect]
     Indication: MULTIPLE SCLEROSIS
     Dosage: UNKNOWN, UNKNOWN, UNKNOWN, UNKNOWN
     Dates: start: 20130215
  3. {LAXATIVE} [Concomitant]
  4. (DERMATOLOGICALS) [Concomitant]

REACTIONS (11)
  - Hallucination [None]
  - Tremor [None]
  - Blood potassium abnormal [None]
  - Staphylococcal infection [None]
  - Skin irritation [None]
  - Contusion [None]
  - Skin exfoliation [None]
  - Drug hypersensitivity [None]
  - Multiple sclerosis relapse [None]
  - Medication error [None]
  - Incorrect drug administration rate [None]
